FAERS Safety Report 5752478-9 (Version None)
Quarter: 2008Q2

REPORT INFORMATION
  Report Type: 
  Country: None (occurrence: None)
  Receive Date: 20080527
  Receipt Date: 20080527
  Transmission Date: 20081010
  Serious: Yes (Hospitalization)
  Sender: FDA-Public Use
  Company Number: None

PATIENT
  Age: 20 Year
  Sex: Female
  Weight: 72.5 kg

DRUGS (1)
  1. TORADOL [Suspect]
     Indication: ABDOMINAL PAIN
     Dosage: 15MG Q6H PRN IV
     Route: 042
     Dates: start: 20080521

REACTIONS (1)
  - ANAPHYLACTIC REACTION [None]
